FAERS Safety Report 8135520-X (Version None)
Quarter: 2012Q1

REPORT INFORMATION
  Report Type: 
  Country: None (occurrence: None)
  Receive Date: 20120214
  Receipt Date: 20120203
  Transmission Date: 20120608
  Serious: Yes (Other)
  Sender: FDA-Public Use
  Company Number: US-PFIZER INC-2012029295

PATIENT
  Age: 57 Year
  Sex: Male

DRUGS (10)
  1. GABAPENTIN [Suspect]
     Dosage: 900 MG, DAILY
  2. SEVELAMER [Concomitant]
  3. TAMSULOSIN [Concomitant]
  4. ACETYLSALICYLIC ACID [Concomitant]
  5. FERROUS SULFATE [Concomitant]
  6. DILTIAZEM [Concomitant]
  7. DOCUSATE [Concomitant]
  8. LACTULOSE [Concomitant]
  9. FINASTERIDE [Concomitant]
  10. LANTUS [Concomitant]

REACTIONS (6)
  - INCORRECT DOSE ADMINISTERED [None]
  - MYOCLONUS [None]
  - ELECTROLYTE IMBALANCE [None]
  - ALTERED STATE OF CONSCIOUSNESS [None]
  - RENAL TUBULAR NECROSIS [None]
  - RENAL IMPAIRMENT [None]
